FAERS Safety Report 17370074 (Version 3)
Quarter: 2021Q1

REPORT INFORMATION
  Report Type: Report from Study
  Country: US (occurrence: US)
  Receive Date: 20200205
  Receipt Date: 20210313
  Transmission Date: 20210419
  Serious: Yes (Other)
  Sender: FDA-Public Use
  Company Number: US-ROCHE-2524375

PATIENT
  Age: 30 Year
  Sex: Female

DRUGS (92)
  1. OCRELIZUMAB. [Suspect]
     Active Substance: OCRELIZUMAB
     Dosage: 200ML AT 10:55 AND STOPPED AT 13:40
     Route: 042
     Dates: start: 20130124, end: 20130124
  2. OCRELIZUMAB. [Suspect]
     Active Substance: OCRELIZUMAB
     Dosage: 520 ML AT 11:15 AND STOPPED AT 15:15
     Route: 042
     Dates: start: 20131211, end: 20131211
  3. PLACEBO [Suspect]
     Active Substance: UNSPECIFIED INGREDIENT
     Route: 058
     Dates: start: 20130529, end: 20130624
  4. PLACEBO [Suspect]
     Active Substance: UNSPECIFIED INGREDIENT
     Route: 058
     Dates: start: 20130625, end: 201307
  5. PLACEBO [Suspect]
     Active Substance: UNSPECIFIED INGREDIENT
     Route: 058
     Dates: start: 20130501, end: 20130527
  6. PLACEBO [Suspect]
     Active Substance: UNSPECIFIED INGREDIENT
     Route: 058
     Dates: start: 20140917, end: 20141013
  7. OCRELIZUMAB. [Suspect]
     Active Substance: OCRELIZUMAB
     Dosage: OLE?WEEK 2
     Route: 042
     Dates: start: 20150122, end: 20150122
  8. OCRELIZUMAB. [Suspect]
     Active Substance: OCRELIZUMAB
     Dosage: OLE?WEEK 144
     Route: 042
     Dates: start: 20171011, end: 20171011
  9. OCRELIZUMAB. [Suspect]
     Active Substance: OCRELIZUMAB
     Dosage: OLE?WEEK 168
     Route: 042
     Dates: start: 20180417, end: 20180417
  10. METHYLPREDNISOLONE. [Concomitant]
     Active Substance: METHYLPREDNISOLONE
     Dosage: OLE?WEEK 0
     Route: 065
     Dates: start: 20150106, end: 20150106
  11. METHYLPREDNISOLONE. [Concomitant]
     Active Substance: METHYLPREDNISOLONE
     Dosage: OLE?WEEK 168
     Route: 065
     Dates: start: 20180417, end: 20180417
  12. DIPHENHYDRAMINE. [Concomitant]
     Active Substance: DIPHENHYDRAMINE
     Dosage: OLE?WEEK 96
     Route: 065
     Dates: start: 20161108
  13. PLACEBO [Suspect]
     Active Substance: UNSPECIFIED INGREDIENT
     Route: 058
     Dates: start: 20140110, end: 20140205
  14. PLACEBO [Suspect]
     Active Substance: UNSPECIFIED INGREDIENT
     Route: 058
     Dates: start: 20130306, end: 20130401
  15. PLACEBO [Suspect]
     Active Substance: UNSPECIFIED INGREDIENT
     Route: 058
     Dates: start: 20130920, end: 20131016
  16. OCRELIZUMAB. [Suspect]
     Active Substance: OCRELIZUMAB
     Dosage: OLE?WEEK 120
     Route: 042
     Dates: start: 20170424, end: 20170424
  17. OCRELIZUMAB. [Suspect]
     Active Substance: OCRELIZUMAB
     Dosage: OLE?WEEK 216
     Route: 042
     Dates: start: 20190314, end: 20190314
  18. METHYLPREDNISOLONE. [Concomitant]
     Active Substance: METHYLPREDNISOLONE
     Dosage: WEEK 72
     Route: 065
     Dates: start: 20140528, end: 20140528
  19. DIPHENHYDRAMINE. [Concomitant]
     Active Substance: DIPHENHYDRAMINE
     Dosage: OLE?WEEK 144
     Route: 065
     Dates: start: 20171011
  20. DIPHENHYDRAMINE. [Concomitant]
     Active Substance: DIPHENHYDRAMINE
     Dosage: OLE?WEEK 192
     Route: 065
     Dates: start: 20180913
  21. PLACEBO [Suspect]
     Active Substance: UNSPECIFIED INGREDIENT
     Route: 058
     Dates: start: 20130625, end: 201308
  22. PLACEBO [Suspect]
     Active Substance: UNSPECIFIED INGREDIENT
     Route: 058
     Dates: start: 20130625, end: 20130918
  23. PLACEBO [Suspect]
     Active Substance: UNSPECIFIED INGREDIENT
     Route: 058
     Dates: start: 20140528, end: 20140623
  24. PLACEBO [Suspect]
     Active Substance: UNSPECIFIED INGREDIENT
     Route: 058
     Dates: start: 20141015, end: 20141110
  25. OCRELIZUMAB. [Suspect]
     Active Substance: OCRELIZUMAB
     Indication: RELAPSING-REMITTING MULTIPLE SCLEROSIS
     Dosage: OLE?WEEK 0
     Route: 042
     Dates: start: 20150106, end: 20150106
  26. OCRELIZUMAB. [Suspect]
     Active Substance: OCRELIZUMAB
     Dosage: OLE?WEEK 48
     Route: 042
     Dates: start: 20151221, end: 20151221
  27. OCRELIZUMAB. [Suspect]
     Active Substance: OCRELIZUMAB
     Dosage: OLE?WEEK 240
     Route: 042
     Dates: start: 20190821, end: 20190821
  28. METHYLPREDNISOLONE. [Concomitant]
     Active Substance: METHYLPREDNISOLONE
     Dosage: WEEK 2
     Route: 065
     Dates: start: 20130124, end: 20130124
  29. METHYLPREDNISOLONE. [Concomitant]
     Active Substance: METHYLPREDNISOLONE
     Dosage: OLE?WEEK 96
     Route: 065
     Dates: start: 20161108, end: 20161108
  30. METHYLPREDNISOLONE. [Concomitant]
     Active Substance: METHYLPREDNISOLONE
     Dosage: OLE?WEEK 192
     Route: 065
     Dates: start: 20180913, end: 20180913
  31. TYLENOL [Concomitant]
     Active Substance: ACETAMINOPHEN
     Dosage: OLE?WEEK 0
     Route: 065
     Dates: start: 20150106
  32. TYLENOL [Concomitant]
     Active Substance: ACETAMINOPHEN
     Dosage: OLE?WEEK 72
     Route: 065
     Dates: start: 20160524
  33. DIPHENHYDRAMINE. [Concomitant]
     Active Substance: DIPHENHYDRAMINE
     Dosage: OLE?WEEK 2
     Route: 065
     Dates: start: 20150122
  34. PLACEBO [Suspect]
     Active Substance: UNSPECIFIED INGREDIENT
     Indication: RELAPSING-REMITTING MULTIPLE SCLEROSIS
     Route: 058
     Dates: start: 20130109, end: 20130204
  35. PLACEBO [Suspect]
     Active Substance: UNSPECIFIED INGREDIENT
     Route: 058
     Dates: start: 20140207, end: 20140305
  36. PLACEBO [Suspect]
     Active Substance: UNSPECIFIED INGREDIENT
     Route: 058
     Dates: start: 20131018, end: 20131113
  37. PLACEBO [Suspect]
     Active Substance: UNSPECIFIED INGREDIENT
     Route: 058
     Dates: start: 20141126, end: 20141222
  38. OCRELIZUMAB. [Suspect]
     Active Substance: OCRELIZUMAB
     Dosage: WEEK 312
     Route: 042
     Dates: start: 20201203, end: 20201203
  39. METHYLPREDNISOLONE. [Concomitant]
     Active Substance: METHYLPREDNISOLONE
     Dosage: WEEK 48
     Route: 065
     Dates: start: 20131211, end: 20131211
  40. TYLENOL [Concomitant]
     Active Substance: ACETAMINOPHEN
     Dosage: WEEK 48
     Route: 065
     Dates: start: 20131211
  41. TYLENOL [Concomitant]
     Active Substance: ACETAMINOPHEN
     Dosage: WEEK 72
     Route: 065
     Dates: start: 20140528
  42. TYLENOL [Concomitant]
     Active Substance: ACETAMINOPHEN
     Dosage: OLE?WEEK 2
     Route: 065
     Dates: start: 20150122
  43. DIPHENHYDRAMINE. [Concomitant]
     Active Substance: DIPHENHYDRAMINE
     Dosage: OLE?WEEK 24
     Route: 065
     Dates: start: 20150624
  44. DIPHENHYDRAMINE. [Concomitant]
     Active Substance: DIPHENHYDRAMINE
     Dosage: OLE?WEEK 120
     Route: 065
     Dates: start: 20170424
  45. PLACEBO [Suspect]
     Active Substance: UNSPECIFIED INGREDIENT
     Route: 058
     Dates: start: 20140305, end: 20140331
  46. OCRELIZUMAB. [Suspect]
     Active Substance: OCRELIZUMAB
     Dosage: OLE?WEEK 72
     Route: 042
     Dates: start: 20160524, end: 20160524
  47. METHYLPREDNISOLONE. [Concomitant]
     Active Substance: METHYLPREDNISOLONE
     Dosage: OLE?WEEK 48
     Route: 065
     Dates: start: 20151221, end: 20151221
  48. METHYLPREDNISOLONE. [Concomitant]
     Active Substance: METHYLPREDNISOLONE
     Dosage: OLE?WEEK 120
     Route: 065
     Dates: start: 20170424, end: 20170425
  49. METHYLPREDNISOLONE. [Concomitant]
     Active Substance: METHYLPREDNISOLONE
     Dosage: OLE?WEEK 240?NEXT DOSE ON 09/MAR/2020 AND 03/DEC/2020
     Route: 065
     Dates: start: 20190821, end: 20190821
  50. TYLENOL [Concomitant]
     Active Substance: ACETAMINOPHEN
     Dosage: WEEK 24
     Route: 065
     Dates: start: 20130625
  51. TYLENOL [Concomitant]
     Active Substance: ACETAMINOPHEN
     Dosage: OLE?WEEK 120
     Route: 065
     Dates: start: 20170424
  52. TYLENOL [Concomitant]
     Active Substance: ACETAMINOPHEN
     Dosage: OLE?WEEK 216
     Route: 065
     Dates: start: 20190314
  53. DIPHENHYDRAMINE. [Concomitant]
     Active Substance: DIPHENHYDRAMINE
     Dosage: OLE?WEEK 240?NEXT DOSE ON 09/MAR/2020 AND 03/DEC/2020
     Route: 065
     Dates: start: 20190821
  54. CLARITIN [Concomitant]
     Active Substance: LORATADINE
     Dates: start: 20170406
  55. OCRELIZUMAB. [Suspect]
     Active Substance: OCRELIZUMAB
     Dosage: 520 ML AT 12:00 AND STOPPED AT 16:30
     Route: 042
     Dates: start: 20130625, end: 20130625
  56. OCRELIZUMAB. [Suspect]
     Active Substance: OCRELIZUMAB
     Dosage: 520 ML AT 11:00 AND STOPPED AT 14:30
     Route: 042
     Dates: start: 20140528, end: 20140528
  57. PLACEBO [Suspect]
     Active Substance: UNSPECIFIED INGREDIENT
     Route: 058
     Dates: start: 20140625, end: 20140721
  58. PLACEBO [Suspect]
     Active Substance: UNSPECIFIED INGREDIENT
     Route: 058
     Dates: start: 20140820, end: 20140915
  59. OCRELIZUMAB. [Suspect]
     Active Substance: OCRELIZUMAB
     Dosage: WEEK 264
     Route: 042
     Dates: start: 20200309, end: 20200309
  60. METHYLPREDNISOLONE. [Concomitant]
     Active Substance: METHYLPREDNISOLONE
     Dosage: WEEK 1
     Route: 065
     Dates: start: 20130109, end: 20130109
  61. METHYLPREDNISOLONE. [Concomitant]
     Active Substance: METHYLPREDNISOLONE
     Dosage: WEEK 24
     Route: 065
     Dates: start: 20130625, end: 20130625
  62. METHYLPREDNISOLONE. [Concomitant]
     Active Substance: METHYLPREDNISOLONE
     Dosage: OLE?WEEK 216
     Route: 065
     Dates: start: 20190314, end: 20190314
  63. TYLENOL [Concomitant]
     Active Substance: ACETAMINOPHEN
     Dosage: OLE?WEEK 168
     Route: 065
     Dates: start: 20180417
  64. TYLENOL [Concomitant]
     Active Substance: ACETAMINOPHEN
     Dosage: OLE?WEEK 240?NEXT DOSE ON 09/MAR/2020 AND 03/DEC/2020
     Route: 065
     Dates: start: 20190821
  65. DIPHENHYDRAMINE. [Concomitant]
     Active Substance: DIPHENHYDRAMINE
     Dosage: OLE?WEEK 0
     Route: 065
     Dates: start: 20150106
  66. DIPHENHYDRAMINE. [Concomitant]
     Active Substance: DIPHENHYDRAMINE
     Dosage: OLE?WEEK 48
     Route: 065
     Dates: start: 20151221
  67. DIPHENHYDRAMINE. [Concomitant]
     Active Substance: DIPHENHYDRAMINE
     Dosage: OLE?WEEK 72
     Route: 065
     Dates: start: 20160524
  68. DIPHENHYDRAMINE. [Concomitant]
     Active Substance: DIPHENHYDRAMINE
     Dosage: OLE?WEEK 168
     Route: 065
     Dates: start: 20180417
  69. OCRELIZUMAB. [Suspect]
     Active Substance: OCRELIZUMAB
     Indication: RELAPSING-REMITTING MULTIPLE SCLEROSIS
     Dosage: 200ML AT 13:30 AND STOPPED AT 16:00
     Route: 042
     Dates: start: 20130109, end: 20130109
  70. PLACEBO [Suspect]
     Active Substance: UNSPECIFIED INGREDIENT
     Route: 058
     Dates: start: 20140402, end: 20140428
  71. PLACEBO [Suspect]
     Active Substance: UNSPECIFIED INGREDIENT
     Route: 058
     Dates: start: 20130403, end: 20130429
  72. OCRELIZUMAB. [Suspect]
     Active Substance: OCRELIZUMAB
     Dosage: OLE?WEEK 96
     Route: 042
     Dates: start: 20161108, end: 20161108
  73. METHYLPREDNISOLONE. [Concomitant]
     Active Substance: METHYLPREDNISOLONE
     Dosage: OLE?WEEK 72
     Route: 065
     Dates: start: 20160524, end: 20160524
  74. METHYLPREDNISOLONE. [Concomitant]
     Active Substance: METHYLPREDNISOLONE
     Dosage: OLE?WEEK 144
     Route: 065
     Dates: start: 20171011, end: 20171011
  75. TYLENOL [Concomitant]
     Active Substance: ACETAMINOPHEN
     Dosage: OLE?WEEK 24
     Route: 065
     Dates: start: 20150624
  76. TYLENOL [Concomitant]
     Active Substance: ACETAMINOPHEN
     Dosage: OLE?WEEK 48
     Route: 065
     Dates: start: 20151221
  77. TYLENOL [Concomitant]
     Active Substance: ACETAMINOPHEN
     Dosage: OLE?WEEK 96
     Route: 065
     Dates: start: 20161108
  78. TYLENOL [Concomitant]
     Active Substance: ACETAMINOPHEN
     Dosage: OLE?WEEK 144
     Route: 065
     Dates: start: 20171011
  79. DIPHENHYDRAMINE. [Concomitant]
     Active Substance: DIPHENHYDRAMINE
     Dosage: WEEK 24
     Route: 065
     Dates: start: 20130625
  80. DIPHENHYDRAMINE. [Concomitant]
     Active Substance: DIPHENHYDRAMINE
     Dosage: WEEK 72
     Route: 065
     Dates: start: 20140528
  81. PLACEBO [Suspect]
     Active Substance: UNSPECIFIED INGREDIENT
     Route: 058
     Dates: start: 20131213, end: 20140108
  82. PLACEBO [Suspect]
     Active Substance: UNSPECIFIED INGREDIENT
     Route: 058
     Dates: start: 20140430, end: 20140523
  83. PLACEBO [Suspect]
     Active Substance: UNSPECIFIED INGREDIENT
     Route: 058
     Dates: start: 20130206, end: 20130304
  84. PLACEBO [Suspect]
     Active Substance: UNSPECIFIED INGREDIENT
     Route: 058
     Dates: start: 20131115, end: 20131211
  85. PLACEBO [Suspect]
     Active Substance: UNSPECIFIED INGREDIENT
     Route: 058
     Dates: start: 20140723, end: 20140818
  86. OCRELIZUMAB. [Suspect]
     Active Substance: OCRELIZUMAB
     Dosage: OLE?WEEK 24
     Route: 042
     Dates: start: 20150624, end: 20150624
  87. OCRELIZUMAB. [Suspect]
     Active Substance: OCRELIZUMAB
     Dosage: OLE?WEEK 192
     Route: 042
     Dates: start: 20180913, end: 20180913
  88. METHYLPREDNISOLONE. [Concomitant]
     Active Substance: METHYLPREDNISOLONE
     Dosage: OLE?WEEK 2
     Route: 065
     Dates: start: 20150122, end: 20150122
  89. METHYLPREDNISOLONE. [Concomitant]
     Active Substance: METHYLPREDNISOLONE
     Dosage: OLE?WEEK 24
     Route: 065
     Dates: start: 20150624, end: 20150624
  90. TYLENOL [Concomitant]
     Active Substance: ACETAMINOPHEN
     Dosage: OLE?WEEK 192
     Route: 065
     Dates: start: 20180913
  91. DIPHENHYDRAMINE. [Concomitant]
     Active Substance: DIPHENHYDRAMINE
     Dosage: WEEK 48
     Route: 065
     Dates: start: 20131211
  92. DIPHENHYDRAMINE. [Concomitant]
     Active Substance: DIPHENHYDRAMINE
     Dosage: OLE?WEEK 216
     Route: 065
     Dates: start: 20190314

REACTIONS (2)
  - Ectopic pregnancy [Unknown]
  - Maternal exposure during pregnancy [Unknown]

NARRATIVE: CASE EVENT DATE: 20200110
